FAERS Safety Report 6749428-5 (Version None)
Quarter: 2010Q2

REPORT INFORMATION
  Report Type: 
  Country: None (occurrence: None)
  Receive Date: 20100601
  Receipt Date: 20100526
  Transmission Date: 20101027
  Serious: Yes (Hospitalization)
  Sender: FDA-Public Use
  Company Number: DE-ROCHE-705589

PATIENT
  Sex: Male
  Weight: 94.2 kg

DRUGS (6)
  1. BEVACIZUMAB [Suspect]
     Dosage: FREQUENCY 27, ROUTE D, DOSE FORM IV
     Route: 050
     Dates: start: 20100505
  2. CAPECITABINE [Suspect]
     Dosage: FREQUENCY 14, ROUTE D, DOSE FORM ORAL
     Route: 050
     Dates: start: 20100505
  3. OXALIPLATIN [Suspect]
     Dosage: FREQUENCY 27, ROUTE D, DOSE FORM IV
     Route: 050
     Dates: start: 20100505
  4. LOPERAMIDE [Concomitant]
     Dates: start: 20100305
  5. RAMIPRIL [Concomitant]
     Dosage: 1-0-0
  6. BISOHEXAL [Concomitant]
     Dosage: 1-0-0

REACTIONS (1)
  - RENAL FAILURE [None]
